FAERS Safety Report 8718439 (Version 5)
Quarter: 2013Q1

REPORT INFORMATION
  Report Type: Report from Study
  Country: JP (occurrence: JP)
  Receive Date: 20120810
  Receipt Date: 20130207
  Transmission Date: 20140127
  Serious: Yes (Other)
  Sender: FDA-Public Use
  Company Number: JP-009507513-1207JPN000021

PATIENT
  Age: 63 Year
  Sex: Male
  Weight: 56 kg

DRUGS (16)
  1. PEGINTRON [Suspect]
     Indication: CHRONIC HEPATITIS C
     Dosage: 1.5 MICROGRAM PER KILOGRAM, QW
     Route: 058
     Dates: start: 20120404, end: 20120530
  2. REBETOL [Suspect]
     Indication: CHRONIC HEPATITIS C
     Dosage: 600 MG, QD, CUMULATIVE DOSE 2400 MG
     Route: 048
     Dates: start: 20120404, end: 20120508
  3. REBETOL [Suspect]
     Dosage: 400 MG, QD, CUMULATIVE DOSE 2400 MG
     Route: 048
     Dates: start: 20120509, end: 20120522
  4. REBETOL [Suspect]
     Dosage: 200 MG,QD, 2400 MG (CUMULATIVE DOSE)
     Route: 048
     Dates: start: 20120523, end: 20120531
  5. TELAVIC [Suspect]
     Indication: CHRONIC HEPATITIS C
     Dosage: 2250 MG, QD, CUMULATIVE DOSE 9000MG
     Route: 048
     Dates: start: 20120404, end: 20120529
  6. TELAVIC [Suspect]
     Dosage: 1500 MG, QD, CUMULATIVE DOSE 9000MG
     Route: 048
     Dates: start: 20120530, end: 20120531
  7. WARFARIN [Concomitant]
     Indication: ATRIAL FIBRILLATION
     Dosage: 2.5 MG, QD
     Route: 048
  8. DIGOSIN [Concomitant]
     Indication: ATRIAL FIBRILLATION
     Dosage: 0.125 MG, ONCE
     Route: 048
  9. DIGOSIN [Concomitant]
     Dosage: 0.125 MG, QD, FORMULATION POR(UNSPECIFIED)
     Route: 048
  10. LENDORMIN [Concomitant]
     Indication: INSOMNIA
     Dosage: 0.25 MG, ONCE, FORMULATION: POR
     Route: 048
  11. LENDORMIN [Concomitant]
     Dosage: 0.25 MG, QD,
     Route: 048
  12. XYZAL [Concomitant]
     Indication: SEASONAL ALLERGY
     Dosage: 5 MG, ONCE, FORMULATION: POR
     Route: 048
  13. SELBEX [Concomitant]
     Indication: GASTRITIS
     Dosage: 150 MG, QD, FORMULATION POR (UNSPECIFIED)
     Route: 048
     Dates: end: 20120508
  14. SELBEX [Concomitant]
     Dosage: 150 MG, QD, FORMULATION POR (UNSPECIFIED)
     Route: 048
  15. GASTER D [Concomitant]
     Indication: GASTRITIS
     Dosage: 20 MG, QD, FORMULATION POR (UNSPECIFIED)
     Route: 048
     Dates: start: 20120425
  16. ALESION [Concomitant]
     Indication: SEASONAL ALLERGY
     Dosage: 20 MG, QD, FORMULATION POR (UNSPECIFIED)
     Route: 048
     Dates: start: 20120509

REACTIONS (2)
  - Photophobia [Recovered/Resolved]
  - Anaemia [Recovered/Resolved]
